FAERS Safety Report 10395115 (Version 1)
Quarter: 2014Q1

REPORT INFORMATION
  Report Type: Spontaneous
  Country: US (occurrence: None)
  Receive Date: 20130418
  Receipt Date: 20130418
  Transmission Date: 20141002
  Serious: Yes (Hospitalization, Other)
  Sender: FDA-Public Use
  Company Number: 2012PROUSA00925

PATIENT
  Age: 72 Year
  Sex: Male
  Weight: 80.7 kg

DRUGS (4)
  1. PROVENGE (SIPULEUCEL-T) SUSPENSION, 250ML [Suspect]
     Indication: PROSTATE CANCER METASTATIC
     Dosage: 250 ML, SINGLE, INTRAVENOUS?
     Route: 042
     Dates: start: 20111223, end: 20111223
  2. CASODEX (BICALUTAMIDE) [Concomitant]
  3. RAPAFLO (SILODOSIN) [Concomitant]
  4. AMLODIPINE (AMLODIPINE BESILATE) [Concomitant]

REACTIONS (2)
  - Disease progression [None]
  - Spinal cord compression [None]
